FAERS Safety Report 13424314 (Version 1)
Quarter: 2017Q2

REPORT INFORMATION
  Report Type: Spontaneous
  Country: US (occurrence: US)
  Receive Date: 20170410
  Receipt Date: 20170410
  Transmission Date: 20170830
  Serious: Yes (Other)
  Sender: FDA-Public Use
  Company Number: US-BAYER-2017-066709

PATIENT
  Age: 65 Year

DRUGS (1)
  1. GADAVIST [Suspect]
     Active Substance: GADOBUTROL
     Dosage: 10 ML, ONCE
     Dates: start: 20170317

REACTIONS (3)
  - Erythema [Recovered/Resolved]
  - Pruritus generalised [Recovered/Resolved]
  - Urticaria [Recovered/Resolved]
